FAERS Safety Report 18864285 (Version 2)
Quarter: 2021Q1

REPORT INFORMATION
  Report Type: Spontaneous
  Country: FR (occurrence: FR)
  Receive Date: 20210208
  Receipt Date: 20210208
  Transmission Date: 20210420
  Serious: Yes (Death, Life-Threatening)
  Sender: FDA-Public Use
  Company Number: FR-PFIZER INC-2021096711

PATIENT
  Age: 72 Year
  Sex: Female
  Weight: 103 kg

DRUGS (5)
  1. ZIRABEV [Suspect]
     Active Substance: BEVACIZUMAB-BVZR
     Dosage: 1625 MG
     Route: 042
     Dates: start: 20201029
  2. ZIRABEV [Suspect]
     Active Substance: BEVACIZUMAB-BVZR
     Dosage: 1600 MG
     Route: 042
     Dates: start: 20201210
  3. TECENTRIQ [Suspect]
     Active Substance: ATEZOLIZUMAB
     Indication: HEPATOCELLULAR CARCINOMA
     Dosage: 1200 MG
     Route: 042
     Dates: start: 20201008, end: 20201210
  4. ZIRABEV [Suspect]
     Active Substance: BEVACIZUMAB-BVZR
     Indication: HEPATOCELLULAR CARCINOMA
     Dosage: 1625 MG
     Route: 042
     Dates: start: 20201008
  5. ZIRABEV [Suspect]
     Active Substance: BEVACIZUMAB-BVZR
     Dosage: 1600 MG
     Route: 042
     Dates: start: 20201119

REACTIONS (2)
  - Death [Fatal]
  - Myocardial necrosis [Recovering/Resolving]

NARRATIVE: CASE EVENT DATE: 20201231
